FAERS Safety Report 17908604 (Version 2)
Quarter: 2020Q3

REPORT INFORMATION
  Report Type: Report from Study
  Country: US (occurrence: US)
  Receive Date: 20200617
  Receipt Date: 20200720
  Transmission Date: 20201103
  Serious: Yes (Hospitalization, Other)
  Sender: FDA-Public Use
  Company Number: US-BAYER-2020-069278

PATIENT
  Age: 62 Year
  Sex: Female

DRUGS (3)
  1. STIVARGA [Suspect]
     Active Substance: REGORAFENIB
     Indication: COLON CANCER
     Dosage: 160 MG, QD
     Route: 048
     Dates: start: 20200414
  2. STIVARGA [Suspect]
     Active Substance: REGORAFENIB
     Indication: COLON CANCER
     Dosage: DAILY DOSE 160 MG, FOR 21 DAYS ON, 7 DAYS OFF
     Route: 048
  3. STIVARGA [Suspect]
     Active Substance: REGORAFENIB
     Indication: COLON CANCER
     Dosage: DAILY DOSE 160 MG, FOR 21 DAYS ON, 7 DAYS OFF
     Route: 048
     Dates: end: 20200707

REACTIONS (4)
  - Hospitalisation [Unknown]
  - Headache [Unknown]
  - Colon cancer [Unknown]
  - Dysphonia [None]
